FAERS Safety Report 8283430-X (Version None)
Quarter: 2012Q2

REPORT INFORMATION
  Report Type: 
  Country: None (occurrence: None)
  Receive Date: 20120413
  Receipt Date: 20120403
  Transmission Date: 20120825
  Serious: Yes (Other)
  Sender: FDA-Public Use
  Company Number: US-ELI_LILLY_AND_COMPANY-US201204000305

PATIENT
  Age: 63 Year
  Sex: Female

DRUGS (3)
  1. HUMULIN N [Suspect]
     Indication: TYPE 2 DIABETES MELLITUS
     Dosage: 40 U, BID
     Route: 065
     Dates: start: 20050214
  2. HUMULIN N [Suspect]
     Dosage: 40 U, BID
     Route: 065
     Dates: start: 20050214
  3. NOVOLIN N [Concomitant]
     Indication: TYPE 2 DIABETES MELLITUS

REACTIONS (21)
  - STRESS [None]
  - FEELING ABNORMAL [None]
  - BLOOD GLUCOSE INCREASED [None]
  - BLOOD GLUCOSE ABNORMAL [None]
  - MALAISE [None]
  - DYSPHONIA [None]
  - REACTION TO DRUG EXCIPIENTS [None]
  - ARTHRITIS [None]
  - ARTHRALGIA [None]
  - INFLAMMATION [None]
  - MUSCLE DISORDER [None]
  - ELECTROLYTE IMBALANCE [None]
  - JOINT SWELLING [None]
  - DRUG PRESCRIBING ERROR [None]
  - SWELLING [None]
  - SCOLIOSIS [None]
  - ASTHENIA [None]
  - HORMONE REPLACEMENT THERAPY [None]
  - INTENTIONAL DRUG MISUSE [None]
  - DRUG DOSE OMISSION [None]
  - LIP SWELLING [None]
